FAERS Safety Report 8577334-2 (Version None)
Quarter: 2012Q3

REPORT INFORMATION
  Report Type: 
  Country: None (occurrence: None)
  Receive Date: 20120807
  Receipt Date: 20120725
  Transmission Date: 20120928
  Serious: No
  Sender: FDA-Public Use
  Company Number: US-ASTRAZENECA-2012SE52684

PATIENT
  Sex: Female

DRUGS (1)
  1. ZOMIG [Suspect]
     Indication: HEADACHE
     Route: 048
     Dates: start: 20120725

REACTIONS (10)
  - OFF LABEL USE [None]
  - DIZZINESS [None]
  - CHEST DISCOMFORT [None]
  - FEELING HOT [None]
  - PARAESTHESIA [None]
  - PALPITATIONS [None]
  - MUSCULOSKELETAL DISCOMFORT [None]
  - THROAT TIGHTNESS [None]
  - INTENTIONAL DRUG MISUSE [None]
  - ASTHENIA [None]
